FAERS Safety Report 7723029-4 (Version None)
Quarter: 2011Q3

REPORT INFORMATION
  Report Type: 
  Country: None (occurrence: None)
  Receive Date: 20110901
  Receipt Date: 20110822
  Transmission Date: 20111222
  Serious: Yes (Hospitalization)
  Sender: FDA-Public Use
  Company Number: US-ELI_LILLY_AND_COMPANY-US201108006859

PATIENT
  Sex: Female

DRUGS (3)
  1. LEVEMIR [Concomitant]
     Dosage: UNK
  2. HUMALOG [Suspect]
     Dosage: UNK UNK, TID
     Dates: start: 19910101
  3. HUMALOG [Suspect]
     Indication: DIABETES MELLITUS
     Dosage: UNK UNK, PRN
     Dates: start: 19910101

REACTIONS (5)
  - INJECTION SITE HAEMATOMA [None]
  - MEMORY IMPAIRMENT [None]
  - URINARY TRACT INFECTION [None]
  - INJECTION SITE PAIN [None]
  - BLOOD GLUCOSE INCREASED [None]
